FAERS Safety Report 23800979 (Version 14)
Quarter: 2025Q2

REPORT INFORMATION
  Report Type: Report from Study
  Country: CA (occurrence: CA)
  Receive Date: 20240430
  Receipt Date: 20250606
  Transmission Date: 20250716
  Serious: Yes (Hospitalization)
  Sender: BAUSCH AND LOMB
  Company Number: CA-BAUSCH-BL-2024-005368

PATIENT
  Age: 69 Year
  Sex: Female
  Weight: 81.72 kg

DRUGS (4)
  1. SILIQ [Suspect]
     Active Substance: BRODALUMAB
     Indication: Psoriasis
     Dosage: 210 MG / 1.5 ML, WEEKLY (WEEK 0 TO WEEK 2)
     Route: 058
     Dates: start: 20210716, end: 20210803
  2. SILIQ [Suspect]
     Active Substance: BRODALUMAB
     Dosage: 210 MG / 1.5 ML, Q2 WEEKS
     Route: 058
     Dates: start: 202108, end: 20240411
  3. SILIQ [Suspect]
     Active Substance: BRODALUMAB
     Dosage: 210 MG / 1.5 ML, Q2 WEEKS
     Route: 058
     Dates: start: 20240524
  4. COVID-19 VACCINE NOS [Suspect]
     Active Substance: COVID-19 VACCINE
     Indication: COVID-19
     Route: 065

REACTIONS (14)
  - Malaise [Recovered/Resolved]
  - Encephalitis viral [Recovered/Resolved]
  - Organic brain syndrome [Recovering/Resolving]
  - Dizziness [Not Recovered/Not Resolved]
  - Sciatica [Not Recovered/Not Resolved]
  - Tremor [Recovering/Resolving]
  - Fall [Recovered/Resolved]
  - Skin burning sensation [Recovering/Resolving]
  - Peripheral swelling [Recovering/Resolving]
  - Sinusitis [Recovered/Resolved]
  - COVID-19 [Recovered/Resolved]
  - Oral herpes [Recovering/Resolving]
  - Product dose omission issue [Unknown]
  - Inappropriate schedule of product administration [Unknown]

NARRATIVE: CASE EVENT DATE: 20240101
